FAERS Safety Report 8431415-2 (Version None)
Quarter: 2012Q2

REPORT INFORMATION
  Report Type: 
  Country: None (occurrence: None)
  Receive Date: 20120605
  Receipt Date: 20120516
  Transmission Date: 20120825
  Serious: No
  Sender: FDA-Public Use
  Company Number: LTI2012A00121

PATIENT
  Age: 65 Year
  Sex: Male

DRUGS (1)
  1. LANSOPRAZOLE [Suspect]
     Indication: PRODUCT USED FOR UNKNOWN INDICATION
     Dosage: 30 MG (30 MG, 1 IN 1 D), SUBLINGUAL
     Route: 060
     Dates: end: 20120101

REACTIONS (2)
  - HEADACHE [None]
  - EYE PAIN [None]
